FAERS Safety Report 7966953-X (Version None)
Quarter: 2011Q4

REPORT INFORMATION
  Report Type: 
  Country: None (occurrence: None)
  Receive Date: 20111209
  Receipt Date: 20111128
  Transmission Date: 20120403
  Serious: Yes (Hospitalization, Other)
  Sender: FDA-Public Use
  Company Number: IN-RANBAXY-2011RR-50889

PATIENT
  Age: 28 Year
  Sex: Female

DRUGS (1)
  1. AMLODIPINE [Suspect]
     Indication: SUICIDAL IDEATION
     Dosage: 50 TABLETS OF AMLODIPINE 5MG
     Route: 048

REACTIONS (4)
  - INTENTIONAL OVERDOSE [None]
  - RENAL FAILURE ACUTE [None]
  - NON-CARDIOGENIC PULMONARY OEDEMA [None]
  - HYPOTENSION [None]
